FAERS Safety Report 23083599 (Version 4)
Quarter: 2023Q4

REPORT INFORMATION
  Report Type: Report from Study
  Country: IT (occurrence: IT)
  Receive Date: 20231019
  Receipt Date: 20231103
  Transmission Date: 20240110
  Serious: Yes (Hospitalization)
  Sender: FDA-Public Use
  Company Number: IT-Eisai Medical Research-EC-2022-123749

PATIENT
  Age: 51 Year
  Sex: Male
  Weight: 95.0 kg

DRUGS (12)
  1. LENVATINIB [Suspect]
     Active Substance: LENVATINIB
     Indication: Clear cell renal cell carcinoma
     Route: 048
     Dates: start: 20220324, end: 20220806
  2. QUAVONLIMAB [Suspect]
     Active Substance: QUAVONLIMAB
     Indication: Clear cell renal cell carcinoma
     Dosage: QUAVONLIMAB 25 MG; PEMBROLIZUMAB 400 MG
     Route: 042
     Dates: start: 20220324, end: 20220726
  3. PEMBROLIZUMAB [Suspect]
     Active Substance: PEMBROLIZUMAB
     Dosage: QUAVONLIMAB 25 MG; PEMBROLIZUMAB 400 MG
     Route: 042
     Dates: start: 20220919
  4. ACETAMINOPHEN\CODEINE PHOSPHATE [Concomitant]
     Active Substance: ACETAMINOPHEN\CODEINE PHOSPHATE
     Dates: start: 20220324, end: 20220820
  5. ACETAMINOPHEN\CODEINE PHOSPHATE [Concomitant]
     Active Substance: ACETAMINOPHEN\CODEINE PHOSPHATE
  6. HYDROCHLOROTHIAZIDE\RAMIPRIL [Concomitant]
     Active Substance: HYDROCHLOROTHIAZIDE\RAMIPRIL
     Dates: start: 20220429
  7. LEVOTHYROXINE SODIUM [Concomitant]
     Active Substance: LEVOTHYROXINE SODIUM
     Dates: start: 20220726
  8. HEPARIN [Concomitant]
     Active Substance: HEPARIN SODIUM
     Route: 058
     Dates: start: 20220805
  9. HEPARIN [Concomitant]
     Active Substance: HEPARIN SODIUM
  10. OMEGA-3 FATTY ACIDS [Concomitant]
     Active Substance: OMEGA-3 FATTY ACIDS
     Dates: start: 20220816
  11. AMLODIPINE [Concomitant]
     Active Substance: AMLODIPINE BESYLATE
     Dates: start: 20220414, end: 20220816
  12. LANSOPRAZOLE [Concomitant]
     Active Substance: LANSOPRAZOLE
     Dates: start: 20220726

REACTIONS (1)
  - Atrial thrombosis [Recovered/Resolved]

NARRATIVE: CASE EVENT DATE: 20220903
